FAERS Safety Report 7087923-2 (Version None)
Quarter: 2010Q4

REPORT INFORMATION
  Report Type: 
  Country: None (occurrence: None)
  Receive Date: 20101108
  Receipt Date: 20101026
  Transmission Date: 20110411
  Serious: Yes (Other)
  Sender: FDA-Public Use
  Company Number: CA-US-EMD SERONO, INC.-230225J10CAN

PATIENT
  Sex: Male

DRUGS (3)
  1. REBIF [Suspect]
     Indication: RELAPSING-REMITTING MULTIPLE SCLEROSIS
     Dates: start: 20020901, end: 20100215
  2. REBIF [Suspect]
     Dates: start: 20100311
  3. OTHERS [Concomitant]

REACTIONS (6)
  - ASCITES [None]
  - CARDIAC FAILURE [None]
  - CHOLELITHIASIS [None]
  - MULTIPLE SCLEROSIS RELAPSE [None]
  - MUSCLE SPASMS [None]
  - RIGHT VENTRICULAR FAILURE [None]
